FAERS Safety Report 4402163-0 (Version None)
Quarter: 2004Q3

REPORT INFORMATION
  Report Type: 
  Country: None (occurrence: None)
  Receive Date: 20040720
  Receipt Date: 20040708
  Transmission Date: 20050211
  Serious: Yes (Hospitalization)
  Sender: FDA-Public Use
  Company Number: US-AMGEN-US082754

PATIENT
  Sex: Female
  Weight: 59.5 kg

DRUGS (16)
  1. SENSIPAR [Suspect]
     Indication: HYPERPARATHYROIDISM SECONDARY
     Route: 048
     Dates: start: 20040506, end: 20040707
  2. DILANTIN [Concomitant]
     Dates: start: 20031113
  3. PHENOBARBITAL TAB [Concomitant]
     Route: 048
     Dates: start: 20031113
  4. TRAZODONE HCL [Concomitant]
     Dates: start: 20040428
  5. ZYPREXA [Concomitant]
     Route: 048
     Dates: start: 20030131
  6. EPOGEN [Concomitant]
     Dates: start: 20040511
  7. CALCITRIOL [Concomitant]
     Dates: start: 20030619
  8. SYNTHROID [Concomitant]
     Dates: start: 20030131
  9. RENAGEL [Concomitant]
     Dates: start: 20021119
  10. ZEMPLAR (ABBOTT LABORATORIES) [Concomitant]
     Dates: start: 20040412
  11. CLONAZEPAM [Concomitant]
     Route: 048
     Dates: start: 20030131
  12. ASPIRIN [Concomitant]
     Route: 048
     Dates: start: 20030131
  13. NEURONTIN [Concomitant]
     Dates: start: 20030131
  14. SORBITOL [Concomitant]
     Dates: start: 20030131
  15. DIATX [Concomitant]
     Dates: start: 20030708
  16. SODIUM BICARBONATE [Concomitant]
     Dates: start: 20040428

REACTIONS (9)
  - ANTICONVULSANT DRUG LEVEL BELOW THERAPEUTIC [None]
  - ATRIOVENTRICULAR BLOCK COMPLETE [None]
  - BLOOD CALCIUM DECREASED [None]
  - CONVULSION [None]
  - GRAND MAL CONVULSION [None]
  - HEART RATE DECREASED [None]
  - NAUSEA [None]
  - SYNCOPE [None]
  - VOMITING [None]
